FAERS Safety Report 9060654 (Version 3)
Quarter: 2014Q2

REPORT INFORMATION
  Report Type: Spontaneous
  Country: US (occurrence: US)
  Receive Date: 20130204
  Receipt Date: 20140506
  Transmission Date: 20141212
  Serious: No
  Sender: FDA-Public Use
  Company Number: US-009507513-1302USA000879

PATIENT
  Sex: Male

DRUGS (8)
  1. PROPECIA [Suspect]
     Indication: ALOPECIA
     Dosage: 1 MG, QD
     Route: 048
     Dates: start: 20071227, end: 20100723
  2. PROPECIA [Suspect]
     Dosage: 1 MG, QOD
     Route: 048
  3. FINASTERIDE [Suspect]
     Indication: ALOPECIA
     Dosage: 1 MG, UNK
     Dates: start: 20071227, end: 20100723
  4. PENTASA [Concomitant]
     Indication: CROHN^S DISEASE
     Dosage: UNK
     Dates: start: 1996
  5. CANASA [Concomitant]
     Indication: CROHN^S DISEASE
     Dosage: UNK
     Route: 054
     Dates: start: 1999
  6. ENTOCORT [Concomitant]
     Indication: CROHN^S DISEASE
     Dosage: UNK
     Dates: start: 1998, end: 201312
  7. LIALDA [Concomitant]
     Indication: CROHN^S DISEASE
     Dosage: UNK
     Dates: start: 2004, end: 201206
  8. ROGAINE [Concomitant]
     Indication: ALOPECIA

REACTIONS (6)
  - Cognitive disorder [Not Recovered/Not Resolved]
  - Sensory loss [Unknown]
  - Genital hypoaesthesia [Unknown]
  - Genital paraesthesia [Unknown]
  - Erectile dysfunction [Unknown]
  - Sexual dysfunction [Not Recovered/Not Resolved]
